FAERS Safety Report 4537845-3 (Version None)
Quarter: 2004Q4

REPORT INFORMATION
  Report Type: 
  Country: None (occurrence: None)
  Receive Date: 20041224
  Receipt Date: 20041213
  Transmission Date: 20050328
  Serious: Yes (Other)
  Sender: FDA-Public Use
  Company Number: JP-MERCK-0412USA02138

PATIENT
  Age: 76 Year
  Sex: Male

DRUGS (9)
  1. PEPCID RPD [Suspect]
     Route: 048
     Dates: start: 20010301, end: 20011201
  2. PEPCID RPD [Suspect]
     Route: 048
     Dates: start: 20011201
  3. ZYLORIC [Suspect]
     Route: 048
     Dates: start: 20010301, end: 20041201
  4. HABEKACIN [Suspect]
     Route: 042
     Dates: start: 20041111, end: 20041119
  5. HABEKACIN [Suspect]
     Route: 042
     Dates: start: 20041120, end: 20041124
  6. PROHEPARUM [Concomitant]
     Route: 048
     Dates: start: 20010301
  7. LASIX [Concomitant]
     Route: 042
     Dates: start: 20010301
  8. ALDACTONE [Concomitant]
     Route: 042
     Dates: start: 20010301
  9. KANAMYCIN [Concomitant]
     Route: 048
     Dates: start: 20010301

REACTIONS (1)
  - RENAL IMPAIRMENT [None]
